FAERS Safety Report 9126917 (Version 1)
Quarter: 2013Q1

REPORT INFORMATION
  Report Type: Spontaneous
  Country: FR (occurrence: FR)
  Receive Date: 20130228
  Receipt Date: 20130228
  Transmission Date: 20140127
  Serious: Yes (Hospitalization)
  Sender: FDA-Public Use
  Company Number: FR-JNJFOC-20130214858

PATIENT
  Age: 62 Year
  Sex: Male

DRUGS (6)
  1. CONTRAMAL [Suspect]
     Indication: ARTHRALGIA
     Route: 048
     Dates: start: 201101
  2. CIALIS [Suspect]
     Indication: ERECTILE DYSFUNCTION
     Route: 048
     Dates: start: 20110113, end: 20110120
  3. TETRAZEPAM [Suspect]
     Indication: MYALGIA
     Route: 048
     Dates: start: 201101
  4. LERCAN [Concomitant]
     Indication: PRODUCT USED FOR UNKNOWN INDICATION
     Route: 048
  5. TAHOR [Concomitant]
     Indication: PRODUCT USED FOR UNKNOWN INDICATION
     Route: 048
  6. CO-RENITEC [Concomitant]
     Indication: PRODUCT USED FOR UNKNOWN INDICATION
     Route: 048

REACTIONS (1)
  - Erythema multiforme [Recovered/Resolved]
